FAERS Safety Report 18554351 (Version 2)
Quarter: 2021Q1

REPORT INFORMATION
  Report Type: Spontaneous
  Country: CA (occurrence: CA)
  Receive Date: 20201127
  Receipt Date: 20210112
  Transmission Date: 20210419
  Serious: Yes (Other)
  Sender: FDA-Public Use
  Company Number: CA-SAMSUNG BIOEPIS-SB-2020-35210

PATIENT
  Age: 30 Year
  Sex: Female

DRUGS (8)
  1. HYDROMORPHONE [HYDROMORPHONE HYDROCHLORIDE] [Concomitant]
     Active Substance: HYDROMORPHONE HYDROCHLORIDE
     Indication: PRODUCT USED FOR UNKNOWN INDICATION
     Route: 048
  2. HYDROMORPHONE [HYDROMORPHONE HYDROCHLORIDE] [Concomitant]
     Active Substance: HYDROMORPHONE HYDROCHLORIDE
     Route: 048
  3. METFORMIN [Concomitant]
     Active Substance: METFORMIN HYDROCHLORIDE
     Indication: PRODUCT USED FOR UNKNOWN INDICATION
     Route: 048
  4. HYDROMORPHONE [HYDROMORPHONE HYDROCHLORIDE] [Concomitant]
     Active Substance: HYDROMORPHONE HYDROCHLORIDE
     Route: 048
  5. AZATHIOPRINE. [Concomitant]
     Active Substance: AZATHIOPRINE
     Indication: PRODUCT USED FOR UNKNOWN INDICATION
     Route: 048
  6. SERTRALINE HYDROCHLORIDE. [Concomitant]
     Active Substance: SERTRALINE HYDROCHLORIDE
     Indication: PRODUCT USED FOR UNKNOWN INDICATION
     Route: 048
  7. INFLIXIMAB [Suspect]
     Active Substance: INFLIXIMAB
     Indication: CROHN^S DISEASE
     Route: 042
  8. IMURAN [Concomitant]
     Active Substance: AZATHIOPRINE
     Indication: PRODUCT USED FOR UNKNOWN INDICATION
     Route: 048

REACTIONS (12)
  - Anal fissure [Unknown]
  - Intentional product use issue [Unknown]
  - Heart rate irregular [Unknown]
  - Productive cough [Unknown]
  - Pyrexia [Unknown]
  - Inappropriate schedule of product administration [Unknown]
  - Abscess [Unknown]
  - Malaise [Unknown]
  - Rhinorrhoea [Unknown]
  - Drug level below therapeutic [Unknown]
  - Blood pressure decreased [Unknown]
  - Off label use [Unknown]
